FAERS Safety Report 9278272 (Version 1)
Quarter: 2013Q2

REPORT INFORMATION
  Report Type: Spontaneous
  Country: PH (occurrence: PH)
  Receive Date: 20130508
  Receipt Date: 20130508
  Transmission Date: 20140414
  Serious: Yes (Other)
  Sender: FDA-Public Use
  Company Number: PH-B.I. PHARMACEUTICALS,INC./RIDGEFIELD-2013-BI-11962RP

PATIENT
  Age: 62 Year
  Sex: Male

DRUGS (3)
  1. TRAJENTA [Suspect]
     Indication: DIABETES MELLITUS
     Dosage: 5 MG
     Dates: start: 20121011, end: 201304
  2. GLIMEPIRIDE [Concomitant]
     Indication: DIABETES MELLITUS
     Dosage: 2 MG
     Route: 048
  3. INSULIN- LANTUS [Concomitant]
     Indication: DIABETES MELLITUS

REACTIONS (3)
  - Pancreatic carcinoma [Not Recovered/Not Resolved]
  - Pancreatitis chronic [Not Recovered/Not Resolved]
  - Weight decreased [Not Recovered/Not Resolved]
